FAERS Safety Report 4356092-1 (Version None)
Quarter: 2004Q2

REPORT INFORMATION
  Report Type: 
  Country: None (occurrence: None)
  Receive Date: 20040511
  Receipt Date: 20040317
  Transmission Date: 20050107
  Serious: Yes (Life-Threatening, Hospitalization, Other)
  Sender: FDA-Public Use
  Company Number: US-GLAXOSMITHKLINE-A0503424A

PATIENT
  Age: 53 Year
  Sex: Male
  Weight: 68.2 kg

DRUGS (5)
  1. WELLBUTRIN [Suspect]
     Indication: ILL-DEFINED DISORDER
     Dosage: 300MG SINGLE DOSE
     Route: 048
     Dates: start: 20040310
  2. ALLEGRA [Concomitant]
     Dosage: 180MG PER DAY
     Route: 048
  3. AVALIDE [Concomitant]
     Dosage: 300MG PER DAY
     Route: 048
  4. SINGULAIR [Concomitant]
     Dosage: 10MG AT NIGHT
     Route: 048
  5. IBUPROFEN [Concomitant]
     Indication: HEADACHE

REACTIONS (3)
  - DISORIENTATION [None]
  - HEADACHE [None]
  - WHITE BLOOD CELL COUNT INCREASED [None]
